FAERS Safety Report 10013261 (Version 1)
Quarter: 2014Q1

REPORT INFORMATION
  Report Type: Spontaneous
  Country: US (occurrence: US)
  Receive Date: 20140314
  Receipt Date: 20140314
  Transmission Date: 20141002
  Serious: Yes (Other)
  Sender: FDA-Public Use
  Company Number: US-BAXTER-2014BAX012305

PATIENT
  Sex: Male

DRUGS (6)
  1. HEPARIN SODIUM IN 0.9% SODIUM CHLORIDE INJECTION [Suspect]
     Indication: VASCULAR GRAFT
     Route: 042
     Dates: start: 20120212, end: 20120216
  2. HEPARIN SODIUM IN 0.9% SODIUM CHLORIDE INJECTION [Suspect]
     Indication: AORTIC VALVE REPLACEMENT
     Dates: start: 20120216, end: 20120216
  3. HEPARIN SODIUM IN 0.9% SODIUM CHLORIDE INJECTION [Suspect]
     Indication: HAEMATOMA EVACUATION
     Dates: start: 20120221, end: 20120221
  4. HEPARIN SODIUM IN 0.9% SODIUM CHLORIDE INJECTION [Suspect]
     Indication: DIALYSIS
     Dates: start: 20120222, end: 20120222
  5. HEPARIN SODIUM IN 0.9% SODIUM CHLORIDE INJECTION [Suspect]
     Indication: CARDIAC TAMPONADE
     Dates: start: 20120223, end: 20120223
  6. ARGATROBAN [Concomitant]
     Indication: PRODUCT USED FOR UNKNOWN INDICATION

REACTIONS (10)
  - Heparin-induced thrombocytopenia [Unknown]
  - Heparin-induced thrombocytopenia [Unknown]
  - Cyanosis [Unknown]
  - Dry gangrene [Unknown]
  - Cardiogenic shock [Unknown]
  - Haematoma [Unknown]
  - Cardiac tamponade [Unknown]
  - Thrombocytopenia [Unknown]
  - Skin discolouration [Unknown]
  - Livedo reticularis [Unknown]
